FAERS Safety Report 5495058-5 (Version None)
Quarter: 2007Q4

REPORT INFORMATION
  Report Type: 
  Country: None (occurrence: None)
  Receive Date: 20071024
  Receipt Date: 20071010
  Transmission Date: 20080405
  Serious: Yes (Death, Hospitalization, Other)
  Sender: FDA-Public Use
  Company Number: GB-RANBAXY-2007RR-09198

PATIENT

DRUGS (2)
  1. ASPIRIN TABLETS BP 300MG [Suspect]
     Route: 048
  2. IBUPROFEN TABLETS BP 400MG [Suspect]
     Route: 048

REACTIONS (10)
  - CARDIAC ARREST [None]
  - CIRCULATORY COLLAPSE [None]
  - COMA [None]
  - CONFUSIONAL STATE [None]
  - DEAFNESS [None]
  - FEELING COLD [None]
  - HYPERVENTILATION [None]
  - HYPOTENSION [None]
  - OVERDOSE [None]
  - VOMITING [None]
